FAERS Safety Report 13811368 (Version 1)
Quarter: 2017Q3

REPORT INFORMATION
  Report Type: Spontaneous
  Country: US (occurrence: US)
  Receive Date: 20170728
  Receipt Date: 20170728
  Transmission Date: 20171127
  Serious: No
  Sender: FDA-Public Use
  Company Number: US-ROCHE-1053611

PATIENT
  Age: 77 Year
  Sex: Female

DRUGS (2)
  1. BONIVA [Suspect]
     Active Substance: IBANDRONATE SODIUM
     Indication: OSTEOPOROSIS
     Dosage: 2 INJECTIONS
     Route: 042
  2. PROLIA [Concomitant]
     Active Substance: DENOSUMAB
     Indication: OSTEOPOROSIS

REACTIONS (5)
  - Pain in extremity [Unknown]
  - Bone pain [Unknown]
  - Drug ineffective [Unknown]
  - Dry skin [Unknown]
  - Eye inflammation [Unknown]
